FAERS Safety Report 24435355 (Version 1)
Quarter: 2024Q4

REPORT INFORMATION
  Report Type: Spontaneous
  Country: US (occurrence: US)
  Receive Date: 20241015
  Receipt Date: 20241015
  Transmission Date: 20250115
  Serious: Yes (Other)
  Sender: AUROBINDO
  Company Number: US-MLMSERVICE-20240925-PI208645-00111-1

PATIENT
  Age: 43 Year
  Sex: Male

DRUGS (13)
  1. DOXYCYCLINE [Suspect]
     Active Substance: DOXYCYCLINE
     Indication: Infection
     Dosage: UNK
     Route: 065
     Dates: start: 202403, end: 2024
  2. DOXYCYCLINE [Suspect]
     Active Substance: DOXYCYCLINE
     Indication: Campylobacter bacteraemia
  3. SULFAMETHOXAZOLE AND TRIMETHOPRIM [Suspect]
     Active Substance: SULFAMETHOXAZOLE\TRIMETHOPRIM
     Indication: Campylobacter bacteraemia
     Dosage: UNK, TWO TIMES A DAY
     Route: 065
     Dates: start: 202207, end: 2022
  4. SULFAMETHOXAZOLE AND TRIMETHOPRIM [Suspect]
     Active Substance: SULFAMETHOXAZOLE\TRIMETHOPRIM
     Indication: Infection
  5. PREDNISONE [Suspect]
     Active Substance: PREDNISONE
     Indication: Inflammatory bowel disease
     Dosage: UNK (CHRONIC PREDNISONE FOR SEVERAL YEARS)
     Route: 065
  6. PREDNISONE [Suspect]
     Active Substance: PREDNISONE
     Indication: Bruton^s agammaglobulinaemia
  7. ERTAPENEM [Concomitant]
     Active Substance: ERTAPENEM
     Indication: Campylobacter bacteraemia
     Dosage: UNK
     Route: 065
     Dates: start: 202207, end: 2022
  8. ERTAPENEM [Concomitant]
     Active Substance: ERTAPENEM
     Indication: Infection
  9. VEDOLIZUMAB [Concomitant]
     Active Substance: VEDOLIZUMAB
     Indication: Gastrointestinal disorder
     Dosage: UNK
     Route: 065
     Dates: start: 2023
  10. CEFEPIME [Concomitant]
     Active Substance: CEFEPIME HYDROCHLORIDE
     Indication: Infection
     Dosage: UNK
     Route: 065
     Dates: start: 202403, end: 2024
  11. CEFEPIME [Concomitant]
     Active Substance: CEFEPIME HYDROCHLORIDE
     Indication: Campylobacter bacteraemia
  12. PREDNISONE [Concomitant]
     Active Substance: PREDNISONE
     Indication: Bruton^s agammaglobulinaemia
     Dosage: UNK (GRADUAL REDUCTION IN HIS CHRONIC PREDNISONE DOSAGE)
     Route: 065
     Dates: start: 2023
  13. PREDNISONE [Concomitant]
     Active Substance: PREDNISONE
     Indication: Inflammatory bowel disease
     Dosage: UNK (CHRONIC PREDNISONE FOR SEVERAL YEARS)
     Route: 065
     Dates: end: 2023

REACTIONS (3)
  - Minimum inhibitory concentration increased [Unknown]
  - Abdominal discomfort [Unknown]
  - Photosensitivity reaction [Unknown]

NARRATIVE: CASE EVENT DATE: 20220101
